FAERS Safety Report 6576708-9 (Version None)
Quarter: 2010Q1

REPORT INFORMATION
  Report Type: 
  Country: None (occurrence: None)
  Receive Date: 20100210
  Receipt Date: 20100201
  Transmission Date: 20100710
  Serious: Yes (Hospitalization)
  Sender: FDA-Public Use
  Company Number: FR-PFIZER INC-2010012825

PATIENT
  Age: 80 Year
  Sex: Male

DRUGS (6)
  1. ALDALIX [Suspect]
     Indication: CARDIAC FAILURE
     Dosage: 2 DF, WEEKLY
     Route: 048
  2. GABAPENTIN [Suspect]
     Indication: EPILEPSY
     Dosage: 3 G, DAILY
     Route: 048
  3. SIMVASTATIN [Suspect]
     Dosage: 10 UNK, DAILY
     Route: 048
  4. PREVISCAN [Suspect]
     Dosage: 20 MG, 1X/DAY
     Route: 048
     Dates: end: 20090109
  5. DIGOXIN [Suspect]
     Indication: ISCHAEMIC CARDIOMYOPATHY
     Dosage: 0.25 MG, 1X/DAY
  6. NITRODERM [Suspect]
     Indication: CARDIAC FAILURE
     Dosage: 5 MG, UNK
     Route: 062

REACTIONS (1)
  - PELVIC HAEMATOMA [None]
